FAERS Safety Report 17241267 (Version 1)
Quarter: 2020Q1

REPORT INFORMATION
  Report Type: Report from Study
  Country: ES (occurrence: ES)
  Receive Date: 20200107
  Receipt Date: 20200107
  Transmission Date: 20200409
  Serious: Yes (Hospitalization)
  Sender: FDA-Public Use
  Company Number: ES-ACCORD-168780

PATIENT
  Age: 68 Year
  Sex: Female

DRUGS (5)
  1. ADIRO [Interacting]
     Active Substance: ASPIRIN
     Indication: CARDIAC FAILURE
     Dosage: STRENGTH: 100 MG, 30 TABLETS
     Route: 048
     Dates: start: 201706, end: 201901
  2. SERC [Concomitant]
     Dosage: STRENGTH: 16 MG , 30 TABLETS
     Route: 048
     Dates: start: 201812, end: 20190731
  3. BISOPROLOL [Concomitant]
     Active Substance: BISOPROLOL
     Indication: HYPERTENSION
     Route: 048
     Dates: start: 201705
  4. ATORVASTATIN/ATORVASTATIN CALCIUM [Suspect]
     Active Substance: ATORVASTATIN CALCIUM
     Indication: DYSLIPIDAEMIA
     Route: 048
     Dates: start: 201706, end: 20190731
  5. SINTROM [Interacting]
     Active Substance: ACENOCOUMAROL
     Indication: ATRIAL FIBRILLATION
     Dosage: STRENGTH:4 MG 20 TABLETS
     Route: 048
     Dates: start: 200602, end: 20190731

REACTIONS (2)
  - Haemorrhage intracranial [Recovered/Resolved]
  - Drug interaction [Unknown]

NARRATIVE: CASE EVENT DATE: 20190731
